FAERS Safety Report 16841526 (Version 1)
Quarter: 2019Q3

REPORT INFORMATION
  Report Type: Report from Study
  Country: TW (occurrence: TW)
  Receive Date: 20190923
  Receipt Date: 20190923
  Transmission Date: 20191005
  Serious: Yes (Death, Hospitalization)
  Sender: FDA-Public Use
  Company Number: PHHO2017TW000657

PATIENT
  Age: 68 Year
  Sex: Female
  Weight: 63.8 kg

DRUGS (11)
  1. AMILORIDE/HYDROCHLOORTHIAZIDE [Concomitant]
     Active Substance: AMILORIDE HYDROCHLORIDE\HYDROCHLOROTHIAZIDE
     Indication: CARDIAC FAILURE
     Dosage: UNK
     Route: 065
  2. XANTHIUM [Concomitant]
     Indication: ASTHMA
     Dosage: 200 MG, UNK
     Route: 048
     Dates: start: 20140529
  3. AMIZIDE [Concomitant]
     Active Substance: AMILORIDE HYDROCHLORIDE\HYDROCHLOROTHIAZIDE
     Indication: HYPERTENSION
     Dosage: 25 MG, QD
     Route: 048
     Dates: start: 20160118
  4. LCZ696 [Suspect]
     Active Substance: SACUBITRIL\VALSARTAN
     Indication: CARDIAC FAILURE CONGESTIVE
     Dosage: 200 MG, BID
     Route: 048
     Dates: start: 20160620, end: 20170102
  5. CELEBREX [Concomitant]
     Active Substance: CELECOXIB
     Indication: TENDON RUPTURE
     Dosage: 200 MG, QD
     Route: 048
     Dates: start: 20161029
  6. THEOPHYLLINE [Concomitant]
     Active Substance: THEOPHYLLINE ANHYDROUS
     Indication: ASTHMA
     Dosage: 200 MG, A1
     Route: 048
     Dates: start: 20140509
  7. BOKEY [Concomitant]
     Indication: PROPHYLAXIS
     Dosage: 100 MG, QD
     Route: 048
     Dates: start: 20140529
  8. CRESTOR [Concomitant]
     Active Substance: ROSUVASTATIN CALCIUM
     Indication: DYSLIPIDAEMIA
     Dosage: 10 MG, QOD
     Route: 048
     Dates: start: 20140710
  9. ASPIRIN. [Concomitant]
     Active Substance: ASPIRIN
     Indication: PRODUCT USED FOR UNKNOWN INDICATION
     Route: 065
  10. HERBESSER [Concomitant]
     Active Substance: DILTIAZEM HYDROCHLORIDE
     Indication: HYPERTENSION
     Dosage: 30 MG, BID
     Route: 048
     Dates: start: 20160309
  11. PLACEBO [Suspect]
     Active Substance: UNSPECIFIED INGREDIENT
     Indication: CARDIAC FAILURE CONGESTIVE
     Dosage: UNK
     Route: 048
     Dates: start: 20160620, end: 20170102

REACTIONS (3)
  - Hypotension [Fatal]
  - Respiratory failure [Fatal]
  - Interstitial lung disease [Fatal]

NARRATIVE: CASE EVENT DATE: 20161230
